FAERS Safety Report 10737401 (Version 1)
Quarter: 2015Q1

REPORT INFORMATION
  Report Type: Other
  Country: US (occurrence: US)
  Receive Date: 20150126
  Receipt Date: 20150126
  Transmission Date: 20150721
  Serious: Yes (Death)
  Sender: FDA-Public Use
  Company Number: US-LEHIGH_VALLEY-USA-POI0580201500037

PATIENT
  Age: 58 Year
  Sex: Female

DRUGS (4)
  1. ACETAMINOPHEN. [Suspect]
     Active Substance: ACETAMINOPHEN
     Dates: end: 2013
  2. CYCLIC ANTIDEPRESSANT [Suspect]
     Active Substance: UNSPECIFIED INGREDIENT
     Dates: end: 2013
  3. AMPHETAMINE [Suspect]
     Active Substance: AMPHETAMINE
     Dates: end: 2013
  4. OXYCODONE HCL CAPSULES [Suspect]
     Active Substance: OXYCODONE HYDROCHLORIDE
     Dates: end: 2013

REACTIONS (1)
  - Completed suicide [None]

NARRATIVE: CASE EVENT DATE: 2013
